FAERS Safety Report 5153454-X (Version None)
Quarter: 2006Q4

REPORT INFORMATION
  Report Type: 
  Country: None (occurrence: None)
  Receive Date: 20061114
  Receipt Date: 20061107
  Transmission Date: 20070319
  Serious: No
  Sender: FDA-Public Use
  Company Number: TAP2006Q00783

PATIENT
  Age: 86 Year
  Sex: Male

DRUGS (5)
  1. LUPRON DEPOT-3 [Suspect]
     Indication: PROSTATE CANCER
     Dosage: 30 MG, ONCE
     Dates: start: 20060110, end: 20060110
  2. GLYBURIDE [Concomitant]
  3. WARFARIN SODIUM [Concomitant]
  4. ACTOS [Concomitant]
  5. COUMADIN [Concomitant]

REACTIONS (1)
  - HYPOTHALAMO-PITUITARY DISORDERS [None]
